FAERS Safety Report 25351261 (Version 1)
Quarter: 2025Q2

REPORT INFORMATION
  Report Type: Spontaneous
  Country: US (occurrence: US)
  Receive Date: 20250523
  Receipt Date: 20250523
  Transmission Date: 20250716
  Serious: No
  Sender: STRIDES
  Company Number: US-STRIDES ARCOLAB LIMITED-2024SP009917

PATIENT

DRUGS (4)
  1. DIAZEPAM [Suspect]
     Active Substance: DIAZEPAM
     Indication: Muscle spasticity
  2. DIAZEPAM [Suspect]
     Active Substance: DIAZEPAM
     Indication: Amyotrophic lateral sclerosis
  3. BACLOFEN [Suspect]
     Active Substance: BACLOFEN
     Indication: Muscle spasticity
  4. BACLOFEN [Suspect]
     Active Substance: BACLOFEN
     Indication: Amyotrophic lateral sclerosis

REACTIONS (1)
  - Off label use [Unknown]
